FAERS Safety Report 5366927-1 (Version None)
Quarter: 2007Q2

REPORT INFORMATION
  Report Type: 
  Country: None (occurrence: None)
  Receive Date: 20070622
  Receipt Date: 20070206
  Transmission Date: 20071010
  Serious: No
  Sender: FDA-Public Use
  Company Number: US-ASTRAZENECA-2007UW02481

PATIENT
  Age: 69 Year
  Sex: Female
  Weight: 73 kg

DRUGS (8)
  1. RHINOCORT [Suspect]
     Indication: HYPERSENSITIVITY
     Dosage: 2 PUFFS EACH NOSTRIL
     Route: 045
  2. BIAXIN [Concomitant]
  3. ZYRTEC [Concomitant]
  4. MACARID [Concomitant]
  5. ZETIA [Concomitant]
  6. LIPITOR [Concomitant]
  7. EFFEXOR [Concomitant]
  8. PLAVIX [Concomitant]

REACTIONS (1)
  - DIZZINESS [None]
